FAERS Safety Report 15869707 (Version 1)
Quarter: 2019Q1

REPORT INFORMATION
  Report Type: Report from Study
  Country: US (occurrence: US)
  Receive Date: 20190125
  Receipt Date: 20190125
  Transmission Date: 20190417
  Serious: Yes (Other)
  Sender: FDA-Public Use
  Company Number: US-REGENERON PHARMACEUTICALS, INC.-2018-48409

PATIENT

DRUGS (6)
  1. VITAMIN E                          /00110501/ [Concomitant]
     Active Substance: TOCOPHEROL
     Indication: PRODUCT USED FOR UNKNOWN INDICATION
  2. EYLEA [Suspect]
     Active Substance: AFLIBERCEPT
     Indication: DIABETIC RETINAL OEDEMA
     Dosage: 2 MG, EVERY 4-5 WEEKS
     Route: 031
     Dates: start: 20181207
  3. BABY ASPIRIN [Concomitant]
     Active Substance: ASPIRIN
     Indication: PRODUCT USED FOR UNKNOWN INDICATION
  4. MICARDIS [Concomitant]
     Active Substance: TELMISARTAN
     Indication: PRODUCT USED FOR UNKNOWN INDICATION
  5. LANTUS [Concomitant]
     Active Substance: INSULIN GLARGINE
     Indication: PRODUCT USED FOR UNKNOWN INDICATION
  6. HUMALOG [Concomitant]
     Active Substance: INSULIN LISPRO
     Indication: PRODUCT USED FOR UNKNOWN INDICATION

REACTIONS (6)
  - Dry eye [Recovered/Resolved]
  - Intraocular pressure increased [Recovered/Resolved]
  - Corneal neovascularisation [Not Recovered/Not Resolved]
  - Headache [Not Recovered/Not Resolved]
  - Refusal of treatment by patient [Unknown]
  - Drug ineffective [Unknown]

NARRATIVE: CASE EVENT DATE: 20181116
